FAERS Safety Report 18079254 (Version 5)
Quarter: 2020Q3

REPORT INFORMATION
  Report Type: Spontaneous
  Country: US (occurrence: US)
  Receive Date: 20200728
  Receipt Date: 20200908
  Transmission Date: 20201103
  Serious: No
  Sender: FDA-Public Use
  Company Number: US-PFIZER INC-2020282596

PATIENT
  Age: 67 Year
  Sex: Male
  Weight: 129.27 kg

DRUGS (5)
  1. DILANTIN [Suspect]
     Active Substance: PHENYTOIN
     Dosage: 260 MG, DAILY (2X 100 MG CAPSULES + 2X 30 MG CAPSULE EVERY DAY)
  2. DILANTIN [Suspect]
     Active Substance: PHENYTOIN
     Dosage: 230 MG, DAILY (2X 100 MG CAPSULES + 1X 30 MG CAPSULE EVERY DAY)
  3. PRIMIDONE. [Concomitant]
     Active Substance: PRIMIDONE
     Indication: GENERALISED TONIC-CLONIC SEIZURE
     Dosage: 625 MG, DAILY (250MG TABLET; ONE TABLET IN THE MORNING, 1.5 TABLET IN THE EVENING)
  4. DILANTIN [Suspect]
     Active Substance: PHENYTOIN
     Dosage: UNK
  5. DILANTIN [Suspect]
     Active Substance: PHENYTOIN
     Indication: GENERALISED TONIC-CLONIC SEIZURE
     Dosage: 360 MG, DAILY

REACTIONS (2)
  - Intentional product use issue [Unknown]
  - Drug ineffective [Unknown]

NARRATIVE: CASE EVENT DATE: 2020
